FAERS Safety Report 5798197-4 (Version None)
Quarter: 2008Q3

REPORT INFORMATION
  Report Type: 
  Country: None (occurrence: None)
  Receive Date: 20080702
  Receipt Date: 20080623
  Transmission Date: 20090109
  Serious: Yes (Hospitalization)
  Sender: FDA-Public Use
  Company Number: B0490810A

PATIENT
  Age: 79 Year
  Sex: Female

DRUGS (7)
  1. ARIXTRA [Suspect]
     Indication: DRUG USE FOR UNKNOWN INDICATION
     Dosage: 5MG PER DAY
     Route: 058
     Dates: start: 20070317, end: 20070322
  2. PREVISCAN [Suspect]
     Dosage: .5UNIT PER DAY
     Route: 048
     Dates: end: 20070317
  3. BISOPROLOL FUMARATE [Concomitant]
     Dosage: 10MG PER DAY
     Route: 048
  4. SIMVASTATIN [Concomitant]
     Route: 048
  5. RAMIPRIL [Concomitant]
     Dosage: 10MG PER DAY
     Route: 048
  6. FUROSEMIDE [Concomitant]
     Dosage: 40MG PER DAY
     Route: 048
     Dates: end: 20070405
  7. QUINOLONE [Concomitant]
     Indication: ESCHERICHIA URINARY TRACT INFECTION
     Dates: start: 20070317

REACTIONS (19)
  - ATRIAL THROMBOSIS [None]
  - DISTURBANCE IN ATTENTION [None]
  - DRUG INTERACTION [None]
  - DYSARTHRIA [None]
  - EMBOLISM [None]
  - EPISTAXIS [None]
  - HEART SOUNDS ABNORMAL [None]
  - HEPATOJUGULAR REFLUX [None]
  - HYPERTENSION [None]
  - MALAISE [None]
  - OEDEMA PERIPHERAL [None]
  - PARAESTHESIA [None]
  - PERIPHERAL ISCHAEMIA [None]
  - PULSE ABSENT [None]
  - PULSE PRESSURE DECREASED [None]
  - SKIN WARM [None]
  - TACHYCARDIA [None]
  - TRANSIENT ISCHAEMIC ATTACK [None]
  - VOMITING [None]
